FAERS Safety Report 7625815-8 (Version None)
Quarter: 2011Q3

REPORT INFORMATION
  Report Type: 
  Country: None (occurrence: None)
  Receive Date: 20110721
  Receipt Date: 20110712
  Transmission Date: 20111222
  Serious: Yes (Hospitalization)
  Sender: FDA-Public Use
  Company Number: FR-ELI_LILLY_AND_COMPANY-FR201107002975

PATIENT
  Sex: Male

DRUGS (1)
  1. ALIMTA [Suspect]
     Indication: NON-SMALL CELL LUNG CANCER
     Dosage: UNK, UNKNOWN
     Route: 042
     Dates: end: 20110501

REACTIONS (1)
  - VASCULITIS [None]
